FAERS Safety Report 8315698-5 (Version None)
Quarter: 2012Q2

REPORT INFORMATION
  Report Type: 
  Country: None (occurrence: None)
  Receive Date: 20120426
  Receipt Date: 20120424
  Transmission Date: 20120825
  Serious: Yes (Hospitalization)
  Sender: FDA-Public Use
  Company Number: PHHY2012GB034739

PATIENT
  Age: 72 Year
  Sex: Male

DRUGS (9)
  1. CYANOCOBALAMIN [Concomitant]
     Dosage: 75 MG, QD
     Route: 048
  2. FLUTICASONE PROPIONATE/SALMETEROL [Concomitant]
     Dosage: 2 DF, BID
  3. ALBUTEROL [Concomitant]
  4. LACTULOSE [Concomitant]
     Dosage: 15 ML, BID
     Route: 048
  5. TRAZODONE HCL [Suspect]
     Dosage: 200 MG, QD
     Route: 048
     Dates: end: 20120411
  6. MIRTAZAPINE [Suspect]
     Dosage: 30 MG, QD
     Route: 048
     Dates: end: 20120411
  7. OLANZAPINE [Suspect]
     Dosage: 10 MG, BID
     Dates: start: 20120102, end: 20120411
  8. ASPIRIN [Concomitant]
     Dosage: 75 MG, QD
  9. MOMETASONE FUROATE [Concomitant]
     Dosage: 2 DF, BID
     Route: 045

REACTIONS (2)
  - NEUROLEPTIC MALIGNANT SYNDROME [None]
  - UNRESPONSIVE TO STIMULI [None]
